FAERS Safety Report 4541206-0 (Version None)
Quarter: 2004Q4

REPORT INFORMATION
  Report Type: 
  Country: None (occurrence: None)
  Receive Date: 20041229
  Receipt Date: 20041221
  Transmission Date: 20050328
  Serious: Yes (Hospitalization)
  Sender: FDA-Public Use
  Company Number: ES-ABBOTT-04P-144-0284352-00

PATIENT
  Age: 37 Year
  Sex: Female

DRUGS (3)
  1. DEPAKENE [Suspect]
     Indication: EPILEPSY
     Route: 048
     Dates: start: 20030101, end: 20040715
  2. PHENOBARBITAL TAB [Suspect]
     Indication: EPILEPSY
     Route: 048
     Dates: start: 20030601, end: 20040715
  3. AMOXICILLIN [Concomitant]
     Indication: BACTERIAL INFECTION
     Route: 048
     Dates: start: 20040710, end: 20040715

REACTIONS (3)
  - BODY TEMPERATURE INCREASED [None]
  - LYMPHADENOPATHY [None]
  - TOXIC SKIN ERUPTION [None]
